FAERS Safety Report 9387769 (Version 1)
Quarter: 2013Q3

REPORT INFORMATION
  Report Type: Spontaneous
  Country: US (occurrence: US)
  Receive Date: 20130708
  Receipt Date: 20130708
  Transmission Date: 20140515
  Serious: Yes (Death, Other)
  Sender: FDA-Public Use
  Company Number: US-PURDUE-USA-2013-0104213

PATIENT
  Age: 26 Year
  Sex: Female

DRUGS (3)
  1. BUTRANS [Suspect]
     Indication: PRODUCT USED FOR UNKNOWN INDICATION
     Route: 062
  2. HYDROCODONE [Suspect]
     Indication: BREAKTHROUGH PAIN
     Route: 048
  3. HEROIN [Suspect]
     Indication: SUBSTANCE ABUSE
     Route: 065

REACTIONS (2)
  - Substance abuse [Unknown]
  - Overdose [Fatal]
